FAERS Safety Report 15220978 (Version 1)
Quarter: 2018Q3

REPORT INFORMATION
  Report Type: Spontaneous
  Country: JP (occurrence: JP)
  Receive Date: 20180731
  Receipt Date: 20180731
  Transmission Date: 20181010
  Serious: Yes (Hospitalization)
  Sender: FDA-Public Use
  Company Number: JP-PFIZER INC-2018297607

PATIENT
  Age: 54 Year
  Sex: Female

DRUGS (8)
  1. ENALAPRIL MALEATE. [Suspect]
     Active Substance: ENALAPRIL MALEATE
     Dosage: 2.5 MG, UNK
  2. ALDACTONE A [Suspect]
     Active Substance: SPIRONOLACTONE
  3. FUROSEMIDE. [Suspect]
     Active Substance: FUROSEMIDE
  4. CARVEDILOL. [Suspect]
     Active Substance: CARVEDILOL
     Dosage: 1.25 MG, UNK
  5. CARVEDILOL. [Suspect]
     Active Substance: CARVEDILOL
     Dosage: 5 MG, UNK
  6. PIMOBENDAN [Concomitant]
     Active Substance: PIMOBENDAN
  7. ENALAPRIL MALEATE. [Suspect]
     Active Substance: ENALAPRIL MALEATE
     Dosage: 5 MG, UNK
  8. CARVEDILOL. [Suspect]
     Active Substance: CARVEDILOL
     Dosage: 2.5 MG, UNK

REACTIONS (1)
  - Brain natriuretic peptide increased [Unknown]
